FAERS Safety Report 17980281 (Version 1)
Quarter: 2020Q3

REPORT INFORMATION
  Report Type: Spontaneous
  Country: US (occurrence: US)
  Receive Date: 20200703
  Receipt Date: 20200703
  Transmission Date: 20201103
  Serious: Yes (Hospitalization, Other)
  Sender: FDA-Public Use
  Company Number: NVSC2020US182333

PATIENT
  Sex: Female
  Weight: 65.77 kg

DRUGS (7)
  1. TRAVATAN [Suspect]
     Active Substance: TRAVOPROST
     Indication: GLAUCOMA
     Route: 065
  2. ESTRADIOL. [Suspect]
     Active Substance: ESTRADIOL
     Indication: PRODUCT USED FOR UNKNOWN INDICATION
     Route: 065
  3. PROVERA [Suspect]
     Active Substance: MEDROXYPROGESTERONE ACETATE
     Indication: HORMONE THERAPY
     Dosage: 5 MG, WHITE SCORED HEXAGONAL, TAKE ONE HALF ONCE DAILY FOR 10 DAYS AND THEN OFF  20 DAYS
     Route: 065
  4. ELIQUIS [Concomitant]
     Active Substance: APIXABAN
     Indication: PRODUCT USED FOR UNKNOWN INDICATION
     Dosage: 5 MG, BID
     Route: 065
     Dates: start: 2016
  5. LATANOPROST. [Suspect]
     Active Substance: LATANOPROST
     Indication: GLAUCOMA
     Route: 065
  6. MEDROXYPROGESTERONE ACETATE. [Suspect]
     Active Substance: MEDROXYPROGESTERONE ACETATE
     Dosage: 2.5 MG, TAKE ONE DAILY BY MOUTH DAILY FOR 10 DAYS AND THEN OFF FOR 20 DAYS
     Route: 065
  7. MEDROXYPROGESTERONE ACETATE. [Suspect]
     Active Substance: MEDROXYPROGESTERONE ACETATE
     Indication: HORMONE THERAPY
     Dosage: 5 MG, TAKE ONE HALF ONCE DAILY FOR 10 DAYS AND THEN OFF FOR 20 DAYS
     Route: 065

REACTIONS (8)
  - Atrioventricular block [Recovered/Resolved with Sequelae]
  - Arrhythmia [Unknown]
  - Overdose [Unknown]
  - Blood pressure increased [Unknown]
  - Wrong technique in product usage process [Unknown]
  - Atrial fibrillation [Recovering/Resolving]
  - Hypertensive crisis [Unknown]
  - Polyp [Unknown]

NARRATIVE: CASE EVENT DATE: 2016
